FAERS Safety Report 18747949 (Version 3)
Quarter: 2021Q1

REPORT INFORMATION
  Report Type: Report from Study
  Country: US (occurrence: US)
  Receive Date: 20210115
  Receipt Date: 20210212
  Transmission Date: 20210419
  Serious: Yes (Other)
  Sender: FDA-Public Use
  Company Number: US-JAZZ-2021-US-000324

PATIENT
  Age: 31 Year
  Sex: Female
  Weight: 87.98 kg

DRUGS (6)
  1. SOLRIAMFETOL (UNSPECIFIED) [Suspect]
     Active Substance: SOLRIAMFETOL
     Indication: NARCOLEPSY
     Dosage: 75 MILLIGRAM, QD
     Route: 048
     Dates: start: 20201013, end: 20210105
  2. FOLIC ACID. [Concomitant]
     Active Substance: FOLIC ACID
     Indication: PRODUCT USED FOR UNKNOWN INDICATION
     Dosage: UNK
  3. WELLBUTRIN [Concomitant]
     Active Substance: BUPROPION HYDROCHLORIDE
     Indication: PRODUCT USED FOR UNKNOWN INDICATION
     Dosage: UNK
     Dates: start: 202012
  4. PRENATAL VITAMINS [MINERALS NOS;VITAMINS NOS] [Concomitant]
     Active Substance: MINERALS\VITAMINS
     Indication: PRODUCT USED FOR UNKNOWN INDICATION
     Dosage: UNK, QD
     Route: 048
  5. LEVOTHYROXINE. [Concomitant]
     Active Substance: LEVOTHYROXINE
     Indication: HYPOTHYROIDISM
     Dosage: 225 MICROGRAM, QD
     Route: 048
  6. SOLRIAMFETOL (UNSPECIFIED) [Suspect]
     Active Substance: SOLRIAMFETOL
     Dosage: 150 MILLIGRAM, QD
     Route: 048
     Dates: start: 20210106

REACTIONS (2)
  - Abortion spontaneous [Recovered/Resolved]
  - Exposure during pregnancy [Unknown]

NARRATIVE: CASE EVENT DATE: 20201205
